FAERS Safety Report 9196727 (Version 1)
Quarter: 2013Q1

REPORT INFORMATION
  Report Type: Spontaneous
  Country: ZA (occurrence: ZA)
  Receive Date: 20130328
  Receipt Date: 20130328
  Transmission Date: 20140127
  Serious: Yes (Hospitalization)
  Sender: FDA-Public Use
  Company Number: ZA-SANOFI-AVENTIS-A01200601288

PATIENT
  Age: 59 Year
  Sex: Male
  Weight: 91 kg

DRUGS (7)
  1. CLOPIDOGREL BISULFATE [Suspect]
     Indication: STENT PLACEMENT
     Dosage: UNIT DOSE: 75 MG
     Route: 048
     Dates: start: 200508
  2. LANTUS [Suspect]
     Indication: TYPE 2 DIABETES MELLITUS
     Route: 058
     Dates: start: 200509
  3. HYDROCHLOROTHIAZIDE/VALSARTAN [Concomitant]
     Indication: HYPERTENSION
     Route: 048
     Dates: start: 1999
  4. PLENDIL [Concomitant]
     Indication: HYPERTENSION
     Route: 048
     Dates: start: 2000
  5. ZOCOR ^MSD^ [Concomitant]
     Indication: HYPERCHOLESTEROLAEMIA
     Route: 048
     Dates: start: 1999
  6. ECOTRIN [Concomitant]
     Indication: PRODUCT USED FOR UNKNOWN INDICATION
     Route: 048
     Dates: start: 1999
  7. ZYLOPRIM [Concomitant]
     Indication: HYPERURICAEMIA
     Route: 048
     Dates: start: 1999

REACTIONS (5)
  - Inflammation [Recovered/Resolved]
  - Anaemia [Recovered/Resolved]
  - Pyrexia [Recovered/Resolved]
  - Red blood cell sedimentation rate increased [Unknown]
  - C-reactive protein increased [Recovering/Resolving]
